FAERS Safety Report 10581463 (Version 2)
Quarter: 2015Q1

REPORT INFORMATION
  Report Type: Report from Study
  Country: FR (occurrence: FR)
  Receive Date: 20141113
  Receipt Date: 20150309
  Transmission Date: 20150720
  Serious: Yes (Death, Hospitalization, Other)
  Sender: FDA-Public Use
  Company Number: FR-ACTELION-A-CH2014-107580

PATIENT
  Age: 51 Year
  Sex: Male
  Weight: 64 kg

DRUGS (13)
  1. PERFALGAN [Concomitant]
     Active Substance: ACETAMINOPHEN
  2. LEVOTHYROX [Concomitant]
     Active Substance: LEVOTHYROXINE
     Dosage: 112.5 MG, OD
  3. PRIMPERAN [Concomitant]
     Active Substance: METOCLOPRAMIDE HYDROCHLORIDE
     Dosage: 10 MG, TID
     Route: 042
  4. TRACLEER [Suspect]
     Active Substance: BOSENTAN\BOSENTAN MONOHYDRATE
     Indication: SCLERODERMA RENAL CRISIS
     Dosage: 125 MG, BID
     Route: 048
     Dates: start: 20131021, end: 20140116
  5. SOLU-MEDROL [Concomitant]
     Active Substance: METHYLPREDNISOLONE SODIUM SUCCINATE
     Dosage: 20 MG, OD
  6. TAZOCILLINE [Concomitant]
     Active Substance: PIPERACILLIN SODIUM\TAZOBACTAM SODIUM
     Dosage: 4 G, TID
  7. SPASFON [Concomitant]
     Active Substance: PHLOROGLUCINOL
  8. INEXIUM [Concomitant]
     Active Substance: ESOMEPRAZOLE
  9. OXYCODONE [Concomitant]
     Active Substance: OXYCODONE
     Dosage: 5 MG, UNK
  10. DEROXAT [Concomitant]
     Active Substance: PAROXETINE HYDROCHLORIDE
     Dosage: 20 MG, OD
  11. DURAGESIC [Concomitant]
     Active Substance: FENTANYL
     Dosage: 25 MCG, UNK
  12. SMOFKABIVEN [Concomitant]
     Active Substance: UNSPECIFIED INGREDIENT
  13. HEPARIN [Concomitant]
     Active Substance: HEPARIN SODIUM
     Route: 042

REACTIONS (22)
  - Renal failure [Fatal]
  - Infection [Unknown]
  - Condition aggravated [Fatal]
  - Dialysis [Not Recovered/Not Resolved]
  - Respiratory failure [Unknown]
  - Fluid overload [Fatal]
  - Cardiac failure [Not Recovered/Not Resolved]
  - Vomiting [Fatal]
  - Acute respiratory distress syndrome [Unknown]
  - Ejection fraction abnormal [Not Recovered/Not Resolved]
  - Anxiety [Unknown]
  - Scleroderma [Fatal]
  - General physical health deterioration [Unknown]
  - Acute coronary syndrome [Not Recovered/Not Resolved]
  - Septic shock [Unknown]
  - Communication disorder [Unknown]
  - Gastrointestinal disorder [Fatal]
  - Cardiac disorder [Not Recovered/Not Resolved]
  - Paranoia [Unknown]
  - Acquired tracheo-oesophageal fistula [Unknown]
  - Troponin increased [Not Recovered/Not Resolved]
  - Pulmonary congestion [Unknown]

NARRATIVE: CASE EVENT DATE: 20140109
